FAERS Safety Report 8256212-2 (Version None)
Quarter: 2012Q2

REPORT INFORMATION
  Report Type: 
  Country: None (occurrence: None)
  Receive Date: 20120403
  Receipt Date: 20120329
  Transmission Date: 20120825
  Serious: Yes (Hospitalization, Other)
  Sender: FDA-Public Use
  Company Number: US-ABBOTT-12P-163-0908686-00

PATIENT
  Sex: Female

DRUGS (1)
  1. HUMIRA [Suspect]
     Indication: PSORIATIC ARTHROPATHY
     Route: 058
     Dates: start: 20110907, end: 20120215

REACTIONS (3)
  - CEREBROVASCULAR ACCIDENT [None]
  - HEART RATE DECREASED [None]
  - MUSCULOSKELETAL DISORDER [None]
